FAERS Safety Report 17776392 (Version 1)
Quarter: 2020Q2

REPORT INFORMATION
  Report Type: Spontaneous
  Country: BR (occurrence: BR)
  Receive Date: 20200513
  Receipt Date: 20200513
  Transmission Date: 20200714
  Serious: Yes (Other)
  Sender: FDA-Public Use
  Company Number: NVSC2020BR127810

PATIENT
  Sex: Male

DRUGS (1)
  1. ZOLPIDEM TARTRATE. [Suspect]
     Active Substance: ZOLPIDEM TARTRATE
     Indication: PRODUCT USED FOR UNKNOWN INDICATION
     Dosage: UNK
     Route: 065

REACTIONS (5)
  - Vision blurred [Unknown]
  - Hypokinesia [Unknown]
  - Dyspnoea [Unknown]
  - Suspected COVID-19 [Recovering/Resolving]
  - Respiratory failure [Recovering/Resolving]
